FAERS Safety Report 24208249 (Version 2)
Quarter: 2024Q4

REPORT INFORMATION
  Report Type: Spontaneous
  Country: CA (occurrence: CA)
  Receive Date: 20240814
  Receipt Date: 20241025
  Transmission Date: 20250115
  Serious: Yes (Other)
  Sender: TEVA
  Company Number: CA-TEVA-VS-3231988

PATIENT
  Age: 15 Year
  Sex: Female

DRUGS (4)
  1. QUETIAPINE FUMARATE [Suspect]
     Active Substance: QUETIAPINE FUMARATE
     Indication: Product used for unknown indication
     Route: 065
  2. FLUOXETINE [Suspect]
     Active Substance: FLUOXETINE HYDROCHLORIDE
     Indication: Product used for unknown indication
     Dosage: FLUOXETINE HYDROCHLORIDE,DOSE FORM: NOT SPECIFIED
     Route: 065
  3. LUPRON DEPOT [Suspect]
     Active Substance: LEUPROLIDE ACETATE
     Indication: Transgender hormonal therapy
     Dosage: POWDER FOR SUSPENSION, SUSTAINED-RELEASE
     Route: 030
  4. LEUPROLIDE ACETATE [Suspect]
     Active Substance: LEUPROLIDE ACETATE
     Indication: Hormone therapy
     Route: 030

REACTIONS (1)
  - Electrocardiogram QT prolonged [Unknown]
